FAERS Safety Report 11672516 (Version 5)
Quarter: 2015Q4

REPORT INFORMATION
  Report Type: Spontaneous
  Country: JP (occurrence: JP)
  Receive Date: 20151028
  Receipt Date: 20151125
  Transmission Date: 20160304
  Serious: Yes (Hospitalization)
  Sender: FDA-Public Use
  Company Number: PHJP2015JP018181

PATIENT
  Age: 3 Year
  Sex: Male
  Weight: 13 kg

DRUGS (5)
  1. TEGRETOL [Suspect]
     Active Substance: CARBAMAZEPINE
     Indication: EPILEPSY
     Dosage: 70 MG, QD
     Route: 048
     Dates: start: 20150902, end: 20150909
  2. TEGRETOL [Suspect]
     Active Substance: CARBAMAZEPINE
     Dosage: 70 MG, BID
     Route: 048
     Dates: start: 20150910, end: 20151006
  3. FLOMOX//CEFCAPENE PIVOXIL HYDROCHLORIDE [Suspect]
     Active Substance: CEFCAPENE PIVOXIL HYDROCHLORIDE HYDRATE
     Indication: PYREXIA
     Dosage: UNK
     Route: 048
     Dates: start: 20150914, end: 20150920
  4. WIDECILLIN//AMOXICILLIN TRIHYDRATE [Suspect]
     Active Substance: AMOXICILLIN
     Indication: OROPHARYNGEAL PAIN
  5. WIDECILLIN//AMOXICILLIN TRIHYDRATE [Suspect]
     Active Substance: AMOXICILLIN
     Indication: PYREXIA
     Dosage: UNK
     Route: 048
     Dates: start: 20150911, end: 20150913

REACTIONS (12)
  - Haemolytic anaemia [Recovering/Resolving]
  - Neutrophil percentage decreased [Unknown]
  - Rash [Unknown]
  - Oropharyngeal pain [Unknown]
  - Pyrexia [Recovered/Resolved]
  - Monocyte percentage increased [Unknown]
  - Pyrexia [Recovered/Resolved]
  - White blood cell count increased [Unknown]
  - Liver disorder [Recovered/Resolved]
  - Haematuria [Unknown]
  - Drug eruption [Recovering/Resolving]
  - Lymphocyte percentage increased [Unknown]

NARRATIVE: CASE EVENT DATE: 20150910
